FAERS Safety Report 8034211-3 (Version None)
Quarter: 2011Q4

REPORT INFORMATION
  Report Type: 
  Country: None (occurrence: None)
  Receive Date: 20111202
  Receipt Date: 20110815
  Transmission Date: 20120403
  Serious: Yes (Disabling)
  Sender: FDA-Public Use
  Company Number: WAES 1108USA01804

PATIENT
  Sex: Female

DRUGS (3)
  1. ACTONEL [Concomitant]
  2. BONIVA [Concomitant]
  3. FOSAMAX [Suspect]
     Indication: OSTEOPOROSIS PROPHYLAXIS
     Dosage: UNK/UNK/PO
     Route: 048

REACTIONS (1)
  - OSTEONECROSIS OF JAW [None]
